FAERS Safety Report 24218318 (Version 1)
Quarter: 2024Q3

REPORT INFORMATION
  Report Type: Report from Study
  Country: DE (occurrence: DE)
  Receive Date: 20240816
  Receipt Date: 20240816
  Transmission Date: 20241017
  Serious: Yes (Life-Threatening, Hospitalization, Other)
  Sender: SANDOZ
  Company Number: DE-NOVPHSZ-PHHY2018DE104426

PATIENT
  Age: 47 Year
  Sex: Male
  Weight: 74 kg

DRUGS (3)
  1. FILGRASTIM [Suspect]
     Active Substance: FILGRASTIM
     Dosage: 2X30 MU/0.5 ML (TOTAL DOSE 2700 UG)
     Route: 065
     Dates: start: 20140703
  2. FILGRASTIM [Suspect]
     Active Substance: FILGRASTIM
     Dosage: 2X30 MU/0.5 ML (TOTAL DOSE 2700 UG)
     Route: 065
     Dates: start: 20140707
  3. FILGRASTIM [Suspect]
     Active Substance: FILGRASTIM
     Indication: Stem cell donor
     Dosage: UNK
     Route: 065
     Dates: start: 20140615

REACTIONS (4)
  - Acute myocardial infarction [Recovered/Resolved with Sequelae]
  - Intervertebral disc protrusion [Recovered/Resolved]
  - Hypertonia [Recovered/Resolved with Sequelae]
  - Blood pressure increased [Recovered/Resolved]

NARRATIVE: CASE EVENT DATE: 20140701
